FAERS Safety Report 9597685 (Version 1)
Quarter: 2013Q4

REPORT INFORMATION
  Report Type: Spontaneous
  Country: US (occurrence: US)
  Receive Date: 20131004
  Receipt Date: 20131004
  Transmission Date: 20140711
  Serious: No
  Sender: FDA-Public Use
  Company Number: US-AMGEN-USASP2013019939

PATIENT
  Age: 48 Year
  Sex: Male
  Weight: 95.24 kg

DRUGS (1)
  1. ENBREL [Suspect]
     Indication: RHEUMATOID ARTHRITIS
     Dosage: UNK
     Route: 058

REACTIONS (3)
  - Injection site pruritus [Unknown]
  - Injection site bruising [Unknown]
  - Injection site reaction [Unknown]
